FAERS Safety Report 16688481 (Version 2)
Quarter: 2020Q3

REPORT INFORMATION
  Report Type: Spontaneous
  Country: US (occurrence: US)
  Receive Date: 20190809
  Receipt Date: 20200807
  Transmission Date: 20201102
  Serious: No
  Sender: FDA-Public Use
  Company Number: US-PURDUE-USA-2019-0146034

PATIENT
  Age: 41 Year
  Sex: Female

DRUGS (1)
  1. BUPRENORPHINE TRANSDERMAL PATCH (SIMILAR TO NDA 21?306) [Suspect]
     Active Substance: BUPRENORPHINE
     Indication: NECK PAIN
     Dosage: 7.5 MCG/HR, WEEKLY
     Route: 062
     Dates: start: 201809

REACTIONS (9)
  - Application site erythema [Unknown]
  - Application site scar [Unknown]
  - Emotional distress [Unknown]
  - Unevaluable event [Unknown]
  - Therapeutic product effect incomplete [Unknown]
  - Application site exfoliation [Not Recovered/Not Resolved]
  - Application site burn [Unknown]
  - Pain [Unknown]
  - Application site erosion [Unknown]

NARRATIVE: CASE EVENT DATE: 201809
